FAERS Safety Report 6216715-9 (Version None)
Quarter: 2009Q2

REPORT INFORMATION
  Report Type: 
  Country: None (occurrence: None)
  Receive Date: 20090603
  Receipt Date: 20090603
  Transmission Date: 20091009
  Serious: Yes (Hospitalization)
  Sender: FDA-Public Use
  Company Number: None

PATIENT
  Age: 43 Year
  Sex: Male
  Weight: 92 kg

DRUGS (1)
  1. PROMETHAZINE [Suspect]
     Dosage: 25 MG OTHER PO
     Route: 048
     Dates: start: 20090530, end: 20090601

REACTIONS (2)
  - SEDATION [None]
  - UNRESPONSIVE TO STIMULI [None]
